FAERS Safety Report 5610880-X (Version None)
Quarter: 2008Q1

REPORT INFORMATION
  Report Type: 
  Country: None (occurrence: None)
  Receive Date: 20080201
  Receipt Date: 20080130
  Transmission Date: 20080703
  Serious: Yes (Other)
  Sender: FDA-Public Use
  Company Number: NL-MERCK-0801NLD00031

PATIENT
  Age: 45 Year
  Sex: Male

DRUGS (1)
  1. ZOCOR [Suspect]
     Indication: HYPERCHOLESTEROLAEMIA
     Route: 048
     Dates: start: 20000103, end: 20021020

REACTIONS (5)
  - FATIGUE [None]
  - FLATULENCE [None]
  - HERPES SIMPLEX [None]
  - MYALGIA [None]
  - SUICIDAL IDEATION [None]
